FAERS Safety Report 6273191-8 (Version None)
Quarter: 2009Q3

REPORT INFORMATION
  Report Type: 
  Country: None (occurrence: None)
  Receive Date: 20090720
  Receipt Date: 20090713
  Transmission Date: 20100115
  Serious: Yes (Other)
  Sender: FDA-Public Use
  Company Number: IT-BRISTOL-MYERS SQUIBB COMPANY-14705099

PATIENT

DRUGS (1)
  1. ABATACEPT [Suspect]
     Indication: UVEITIS
     Dosage: 10 MG/KG (UP TO 750 MG)
     Route: 042

REACTIONS (1)
  - ORAL DISORDER [None]
